FAERS Safety Report 11359549 (Version 23)
Quarter: 2021Q3

REPORT INFORMATION
  Report Type: Report from Study
  Country: US (occurrence: US)
  Receive Date: 20150807
  Receipt Date: 20210826
  Transmission Date: 20211014
  Serious: Yes (Other)
  Sender: FDA-Public Use
  Company Number: PHEH2015US014903

PATIENT
  Age: 17 Year
  Sex: Female

DRUGS (5)
  1. IRON [Concomitant]
     Active Substance: IRON
     Indication: PRODUCT USED FOR UNKNOWN INDICATION
     Dosage: UNKNOWN
     Route: 065
  2. CARBAMAZEPINE. [Concomitant]
     Active Substance: CARBAMAZEPINE
     Indication: PRODUCT USED FOR UNKNOWN INDICATION
     Dosage: UNKNOWN
     Route: 065
  3. AFINITOR [Suspect]
     Active Substance: EVEROLIMUS
     Indication: TUBEROUS SCLEROSIS COMPLEX
     Dosage: 10 MG, QOD
     Route: 048
     Dates: start: 20150626
  4. AFINITOR [Suspect]
     Active Substance: EVEROLIMUS
     Dosage: 10 MG, QD
     Route: 048
     Dates: start: 20150730
  5. AFINITOR [Suspect]
     Active Substance: EVEROLIMUS
     Dosage: 10 MG, QOD (EVERY OTHER DAY)
     Route: 048
     Dates: start: 20150626

REACTIONS (21)
  - Dyspnoea [Unknown]
  - Inflammation [Unknown]
  - Scar pain [Unknown]
  - Breast pain [Unknown]
  - Product dose omission issue [Unknown]
  - Renal cancer [Unknown]
  - Dizziness [Not Recovered/Not Resolved]
  - Pharyngeal inflammation [Unknown]
  - Central nervous system lesion [Unknown]
  - Nausea [Unknown]
  - Drug level decreased [Unknown]
  - Headache [Unknown]
  - Mouth ulceration [Unknown]
  - Incorrect product administration duration [Unknown]
  - Swelling face [Unknown]
  - Pain [Unknown]
  - Product packaging issue [Unknown]
  - Wheezing [Unknown]
  - Vomiting [Unknown]
  - Off label use [Unknown]
  - Product use complaint [Unknown]

NARRATIVE: CASE EVENT DATE: 20150730
